FAERS Safety Report 4432626-3 (Version None)
Quarter: 2004Q3

REPORT INFORMATION
  Report Type: 
  Country: None (occurrence: None)
  Receive Date: 20040820
  Receipt Date: 20040727
  Transmission Date: 20050211
  Serious: Yes (Other)
  Sender: FDA-Public Use
  Company Number: US_0407104462

PATIENT
  Age: 10 Year
  Sex: Male
  Weight: 13 kg

DRUGS (2)
  1. STRATTERA [Suspect]
     Dosage: 28 MG/ 1 DAY
     Dates: start: 20030808
  2. KEPPRA [Concomitant]

REACTIONS (19)
  - ABNORMAL BEHAVIOUR [None]
  - ANGER [None]
  - ANOREXIA [None]
  - ANXIETY [None]
  - DRUG TOXICITY [None]
  - DYSGRAPHIA [None]
  - EDUCATIONAL PROBLEM [None]
  - FATIGUE [None]
  - FLAT AFFECT [None]
  - GRAND MAL CONVULSION [None]
  - HYPERACUSIS [None]
  - IRRITABILITY [None]
  - LETHARGY [None]
  - NAUSEA [None]
  - PERSEVERATION [None]
  - PERSONALITY CHANGE [None]
  - SOCIAL AVOIDANT BEHAVIOUR [None]
  - SOMNOLENCE [None]
  - STOMACH DISCOMFORT [None]
